FAERS Safety Report 8595281-7 (Version None)
Quarter: 2012Q3

REPORT INFORMATION
  Report Type: 
  Country: None (occurrence: None)
  Receive Date: 20120815
  Receipt Date: 20120807
  Transmission Date: 20120928
  Serious: Yes (Other)
  Sender: FDA-Public Use
  Company Number: PL-BAYER-2012-080501

PATIENT
  Sex: Female

DRUGS (3)
  1. MIRENA [Suspect]
     Indication: CONTRACEPTION
     Dosage: UNK
     Dates: start: 20120223
  2. MIRENA [Suspect]
     Indication: MENORRHAGIA
  3. YASMIN [Suspect]

REACTIONS (3)
  - MENORRHAGIA [None]
  - BLEEDING TIME ABNORMAL [None]
  - DEVICE EXPULSION [None]
